FAERS Safety Report 25736883 (Version 3)
Quarter: 2025Q4

REPORT INFORMATION
  Report Type: Report from Study
  Country: US (occurrence: US)
  Receive Date: 20250828
  Receipt Date: 20251031
  Transmission Date: 20260118
  Serious: No
  Sender: DECIPHERA PHARMACEUTICALS
  Company Number: US-DECIPHERA PHARMACEUTICALS LLC-2025US000937

PATIENT
  Age: 77 Year
  Sex: Female

DRUGS (3)
  1. QINLOCK [Suspect]
     Active Substance: RIPRETINIB
     Indication: Gastrointestinal stromal tumour
     Dosage: 100 MILLIGRAM, QD
     Dates: start: 20250213, end: 2025
  2. QINLOCK [Suspect]
     Active Substance: RIPRETINIB
     Indication: Gastrointestinal stromal tumour
     Dosage: 50 MILLIGRAM, QD (1 PILL A DAY)
     Dates: start: 20250818, end: 2025
  3. QINLOCK [Suspect]
     Active Substance: RIPRETINIB
     Dosage: UNK (UPPED DOSE)

REACTIONS (3)
  - Bradycardia [Not Recovered/Not Resolved]
  - Cardiac disorder [Unknown]
  - Incorrect dosage administered [Unknown]

NARRATIVE: CASE EVENT DATE: 20250213
